FAERS Safety Report 11723032 (Version 1)
Quarter: 2015Q4

REPORT INFORMATION
  Report Type: Spontaneous
  Country: US (occurrence: None)
  Receive Date: 20151110
  Receipt Date: 20151110
  Transmission Date: 20160304
  Serious: Yes (Disabling)
  Sender: FDA-Public Use
  Company Number: None

PATIENT
  Age: 67 Year
  Sex: Female
  Weight: 52.16 kg

DRUGS (4)
  1. ESTRACE [Suspect]
     Active Substance: ESTRADIOL
     Indication: IMPAIRED HEALING
     Dosage: 425; SKIN, APPLY VAGINALLY ONCE OER DAY FOR 4 WEEKS
     Dates: start: 20130618
  2. ESTRACE [Suspect]
     Active Substance: ESTRADIOL
     Indication: VAGINAL OPERATION
     Dosage: 425; SKIN, APPLY VAGINALLY ONCE OER DAY FOR 4 WEEKS
     Dates: start: 20130618
  3. LEVOTHYROXINE. [Concomitant]
     Active Substance: LEVOTHYROXINE
  4. ESTRACE [Suspect]
     Active Substance: ESTRADIOL
     Indication: POSTOPERATIVE CARE
     Dosage: 425; SKIN, APPLY VAGINALLY ONCE OER DAY FOR 4 WEEKS
     Dates: start: 20130618

REACTIONS (3)
  - Parathyroidectomy [None]
  - Uterine cancer [None]
  - Thyroid disorder [None]
